FAERS Safety Report 6925392-0 (Version None)
Quarter: 2010Q3

REPORT INFORMATION
  Report Type: 
  Country: None (occurrence: None)
  Receive Date: 20100816
  Receipt Date: 20100810
  Transmission Date: 20110219
  Serious: Yes (Hospitalization)
  Sender: FDA-Public Use
  Company Number: AT-BAYER-201035500GPV

PATIENT
  Age: 51 Year
  Sex: Male
  Weight: 75 kg

DRUGS (4)
  1. NEXAVAR [Suspect]
     Indication: RENAL CELL CARCINOMA
     Route: 048
     Dates: start: 20060901, end: 20060910
  2. NEXAVAR [Suspect]
     Route: 048
     Dates: start: 20060914, end: 20061010
  3. NEXAVAR [Suspect]
     Route: 048
     Dates: start: 20061011, end: 20061018
  4. NEXAVAR [Suspect]
     Route: 048
     Dates: start: 20061117

REACTIONS (2)
  - C-REACTIVE PROTEIN INCREASED [None]
  - TUMOUR ASSOCIATED FEVER [None]
